FAERS Safety Report 10023725 (Version 1)
Quarter: 2014Q1

REPORT INFORMATION
  Report Type: Spontaneous
  Country: US (occurrence: None)
  Receive Date: 20140319
  Receipt Date: 20140319
  Transmission Date: 20141002
  Serious: Yes (Other)
  Sender: FDA-Public Use
  Company Number: None

PATIENT
  Age: 13 Year
  Sex: Female
  Weight: 68.04 kg

DRUGS (1)
  1. VYVANSE [Suspect]
     Indication: ATTENTION DEFICIT/HYPERACTIVITY DISORDER
     Dosage: 1 PILL
     Route: 048
     Dates: start: 20110901, end: 20131211

REACTIONS (9)
  - Depression [None]
  - Social problem [None]
  - Obsessive-compulsive disorder [None]
  - Theft [None]
  - Hallucination, auditory [None]
  - Hallucination, visual [None]
  - Insomnia [None]
  - Fear [None]
  - Homicidal ideation [None]
